FAERS Safety Report 5692620-1 (Version None)
Quarter: 2008Q2

REPORT INFORMATION
  Report Type: 
  Country: None (occurrence: None)
  Receive Date: 20080401
  Receipt Date: 20080324
  Transmission Date: 20081010
  Serious: Yes (Life-Threatening, Hospitalization)
  Sender: FDA-Public Use
  Company Number: TPA2007A00582

PATIENT
  Age: 77 Year
  Sex: Female

DRUGS (14)
  1. PIOGLITAZONE HCL [Suspect]
     Indication: GLUCOSE TOLERANCE IMPAIRED
     Dosage: PER ORAL
     Route: 048
     Dates: start: 20050427, end: 20060404
  2. KEFLEX [Concomitant]
  3. ZETIA [Concomitant]
  4. TYLENOL ES (PARACETAMOL) [Concomitant]
  5. MOBIC [Concomitant]
  6. ROGAINE [Concomitant]
  7. NASOCORT NASAL SPRAY (BUDESONIDE) (NASAL DROPS INCLUDING NASAL SPRAY)) [Concomitant]
  8. TRAMADOL HCL [Concomitant]
  9. ADVIL [Concomitant]
  10. NEXIUM [Concomitant]
  11. RELAFEN [Concomitant]
  12. FERROUS SULFATE (VITAMIN C) (FERROUS SULFATE) [Concomitant]
  13. ZANTAC [Concomitant]
  14. PIROXICAM [Concomitant]

REACTIONS (2)
  - OSTEOARTHRITIS [None]
  - RECTAL CANCER [None]
